FAERS Safety Report 4365665-1 (Version None)
Quarter: 2004Q2

REPORT INFORMATION
  Report Type: 
  Country: None (occurrence: None)
  Receive Date: 20040521
  Receipt Date: 20040429
  Transmission Date: 20050107
  Serious: Yes (Congenital Anomaly)
  Sender: FDA-Public Use
  Company Number: FR_040504051

PATIENT

DRUGS (4)
  1. HUMALOG [Suspect]
  2. FLUDROCORTISONE ACETATE [Concomitant]
  3. HYDROCORTISONE [Concomitant]
  4. LEVOTHYROX (LEVOTHYROXINE SODIUM) [Concomitant]

REACTIONS (3)
  - ABORTION INDUCED [None]
  - DRUG EXPOSURE DURING PREGNANCY [None]
  - KIDNEY MALFORMATION [None]
